FAERS Safety Report 5091664-0 (Version None)
Quarter: 2006Q3

REPORT INFORMATION
  Report Type: 
  Country: None (occurrence: None)
  Receive Date: 20060825
  Receipt Date: 20060809
  Transmission Date: 20061208
  Serious: Yes (Hospitalization)
  Sender: FDA-Public Use
  Company Number: APP200600225

PATIENT
  Sex: Male

DRUGS (4)
  1. FLUOROURACIL [Suspect]
     Indication: GASTRIC CANCER
     Dosage: (1000 MG/M2, 1 IN 28 D), INTRAVENOUS
     Route: 042
     Dates: start: 20060706, end: 20060706
  2. CISPLATIN [Suspect]
     Indication: GASTRIC CANCER
     Dosage: (100 MG/M2, 1 IN 28 D), INTRAVENOUS
     Route: 042
     Dates: start: 20060706, end: 20060706
  3. DIFLUCAN [Concomitant]
  4. MORPHINE SULFATE [Concomitant]

REACTIONS (1)
  - FEBRILE NEUTROPENIA [None]
